FAERS Safety Report 5423478-3 (Version None)
Quarter: 2007Q3

REPORT INFORMATION
  Report Type: 
  Country: None (occurrence: None)
  Receive Date: 20070823
  Receipt Date: 20070821
  Transmission Date: 20080115
  Serious: Yes (Hospitalization)
  Sender: FDA-Public Use
  Company Number: HQWYE404506AUG07

PATIENT
  Sex: Male

DRUGS (7)
  1. RAPAMUNE [Suspect]
     Indication: PROPHYLAXIS AGAINST TRANSPLANT REJECTION
     Route: 048
  2. URSO FALK [Concomitant]
     Route: 065
  3. METOPROLOL SUCCINATE [Concomitant]
     Dosage: 1/2 DAILY
     Route: 065
  4. ESIDRIX [Concomitant]
     Route: 065
  5. ATACAND [Concomitant]
     Route: 065
  6. PANTOPRAZOLE SODIUM [Concomitant]
     Route: 065
  7. ALDACTONE [Concomitant]
     Route: 065

REACTIONS (1)
  - CARDIOMYOPATHY [None]
